FAERS Safety Report 7025000-7 (Version None)
Quarter: 2010Q4

REPORT INFORMATION
  Report Type: 
  Country: None (occurrence: None)
  Receive Date: 20101001
  Receipt Date: 20100924
  Transmission Date: 20110411
  Serious: Yes (Hospitalization, Other)
  Sender: FDA-Public Use
  Company Number: US-ROCHE-729464

PATIENT
  Sex: Female
  Weight: 84 kg

DRUGS (7)
  1. BEVACIZUMAB [Suspect]
     Indication: GLIOBLASTOMA MULTIFORME
     Dosage: LAST DOSE PRIOR TO SAE: 9 SEP 2010
     Route: 042
     Dates: start: 20100427
  2. TEMOZOLOMIDE [Suspect]
     Indication: GLIOBLASTOMA MULTIFORME
     Dosage: FOR 5 DAYS EVERY 2 WEEKS, LAST DOSE PRIOR TO SAE: 13 SEP 2010
     Route: 048
     Dates: start: 20100427
  3. DECADRON [Concomitant]
  4. KEPPRA [Concomitant]
  5. ACTOS [Concomitant]
  6. COUMADIN [Concomitant]
  7. NYSTATIN [Concomitant]
     Dosage: DRUG: NYSTATIN MOUTHWASH

REACTIONS (5)
  - CONVULSION [None]
  - DELIRIUM [None]
  - HERPES ZOSTER [None]
  - HYPOKALAEMIA [None]
  - HYPONATRAEMIA [None]
